FAERS Safety Report 10644469 (Version 1)
Quarter: 2014Q4

REPORT INFORMATION
  Report Type: Spontaneous
  Country: US (occurrence: US)
  Receive Date: 20141210
  Receipt Date: 20141210
  Transmission Date: 20150529
  Serious: Yes (Other)
  Sender: FDA-Public Use
  Company Number: US-ABBVIE-14P-163-1316177-00

PATIENT
  Age: 57 Year
  Sex: Male

DRUGS (3)
  1. ANDROGEL [Suspect]
     Active Substance: TESTOSTERONE
     Indication: PRODUCT USED FOR UNKNOWN INDICATION
     Route: 061
     Dates: start: 20131227
  2. ANDRODERM [Suspect]
     Active Substance: TESTOSTERONE
     Indication: PRODUCT USED FOR UNKNOWN INDICATION
     Route: 065
     Dates: start: 20131227
  3. AXIRON [Suspect]
     Active Substance: TESTOSTERONE
     Indication: PRODUCT USED FOR UNKNOWN INDICATION
     Route: 065
     Dates: start: 20131227

REACTIONS (8)
  - Physical disability [Unknown]
  - Emotional disorder [Unknown]
  - Economic problem [Unknown]
  - Impaired work ability [Unknown]
  - Cerebral infarction [Unknown]
  - Pain [Unknown]
  - Anxiety [Unknown]
  - Partner stress [Unknown]

NARRATIVE: CASE EVENT DATE: 20131227
